FAERS Safety Report 21859774 (Version 2)
Quarter: 2023Q1

REPORT INFORMATION
  Report Type: Report from Study
  Country: US (occurrence: US)
  Receive Date: 20230113
  Receipt Date: 20230120
  Transmission Date: 20230418
  Serious: No
  Sender: FDA-Public Use
  Company Number: US-002147023-NVSC2023US007690

PATIENT
  Sex: Female

DRUGS (1)
  1. KESIMPTA [Suspect]
     Active Substance: OFATUMUMAB
     Indication: Multiple sclerosis
     Dosage: 20 MG
     Route: 058
     Dates: start: 20221217

REACTIONS (6)
  - Chest discomfort [Unknown]
  - Band sensation [Unknown]
  - Dyspepsia [Unknown]
  - Bladder spasm [Unknown]
  - Renal pain [Unknown]
  - Fatigue [Unknown]
